FAERS Safety Report 5893734-3 (Version None)
Quarter: 2008Q3

REPORT INFORMATION
  Report Type: 
  Country: None (occurrence: None)
  Receive Date: 20080918
  Receipt Date: 20080905
  Transmission Date: 20090109
  Serious: Yes (Life-Threatening)
  Sender: FDA-Public Use
  Company Number: 004299

PATIENT
  Age: 49 Year
  Sex: Male

DRUGS (6)
  1. BUSULFEX [Suspect]
     Indication: STEM CELL TRANSPLANT
     Dosage: 32.8 ML, INTRAVENOUS
     Route: 042
     Dates: start: 20070716, end: 20070719
  2. CYCLOPHOSPHAMIDE [Concomitant]
  3. VALPROATE SODIUM [Concomitant]
  4. FILGRASTIM (FILGRASTIM) [Concomitant]
  5. METHOTREXATE [Concomitant]
  6. TACROLIMUS [Concomitant]

REACTIONS (3)
  - BONE MARROW TRANSPLANT REJECTION [None]
  - FEBRILE NEUTROPENIA [None]
  - STEM CELL TRANSPLANT [None]
